FAERS Safety Report 10063010 (Version 1)
Quarter: 2014Q2

REPORT INFORMATION
  Report Type: Report from Study
  Country: US (occurrence: US)
  Receive Date: 20140407
  Receipt Date: 20140407
  Transmission Date: 20141212
  Serious: Yes (Hospitalization)
  Sender: FDA-Public Use
  Company Number: US-BRISTOL-MYERS SQUIBB COMPANY-20580916

PATIENT
  Age: 57 Year
  Sex: Male
  Weight: 161.3 kg

DRUGS (12)
  1. IPILIMUMAB [Suspect]
     Indication: MALIGNANT MELANOMA
     Dosage: TOTAL DOSE:1630MG.?LAST DOSE ON 3MAR14
     Route: 042
     Dates: start: 20140120
  2. VITAMIN C [Concomitant]
  3. ASPIRIN [Concomitant]
  4. ATORVASTATIN [Concomitant]
  5. FISH OIL [Concomitant]
  6. CHONDROITIN SULFATE + GLUCOSAMINE [Concomitant]
  7. LISINOPRIL [Concomitant]
  8. METOPROLOL [Concomitant]
  9. MULTIVITAMIN [Concomitant]
  10. NITROGLYCERIN [Concomitant]
  11. ONDANSETRON [Concomitant]
  12. VITAMIN B12 [Concomitant]

REACTIONS (2)
  - Dyspnoea [Not Recovered/Not Resolved]
  - Supraventricular tachycardia [Not Recovered/Not Resolved]
